FAERS Safety Report 11539757 (Version 1)
Quarter: 2015Q3

REPORT INFORMATION
  Report Type: Spontaneous
  Country: US (occurrence: None)
  Receive Date: 20150922
  Receipt Date: 20150922
  Transmission Date: 20151125
  Serious: No
  Sender: FDA-Public Use
  Company Number: None

PATIENT
  Age: 28 Year
  Sex: Female
  Weight: 117 kg

DRUGS (4)
  1. PRENATAL [Concomitant]
     Active Substance: VITAMINS
  2. PREDNISONE 50 MG TAB ROXANE [Suspect]
     Active Substance: PREDNISONE
     Indication: PLATELET COUNT DECREASED
     Dosage: 1 IN MORNING
     Route: 048
     Dates: start: 20150823, end: 20150825
  3. VITAMIN C [Concomitant]
     Active Substance: ASCORBIC ACID
  4. CHLORELLA VULGARIS [Concomitant]
     Active Substance: CHLORELLA VULGARIS

REACTIONS (6)
  - Dizziness [None]
  - Headache [None]
  - Dry mouth [None]
  - Fatigue [None]
  - Heart rate increased [None]
  - Heart rate irregular [None]

NARRATIVE: CASE EVENT DATE: 20150824
